FAERS Safety Report 11689498 (Version 2)
Quarter: 2015Q4

REPORT INFORMATION
  Report Type: Other
  Country: BE (occurrence: BE)
  Receive Date: 20151102
  Receipt Date: 20151117
  Transmission Date: 20160304
  Serious: Yes (Hospitalization)
  Sender: FDA-Public Use
  Company Number: BE-JUBILANT GENERICS LIMITED-1043630

PATIENT
  Age: 65 Year
  Sex: Male

DRUGS (7)
  1. PANTOPRAZOLE [Suspect]
     Active Substance: PANTOPRAZOLE SODIUM
  2. DIAZEPAM. [Concomitant]
     Active Substance: DIAZEPAM
  3. FUROSEMIDE. [Concomitant]
     Active Substance: FUROSEMIDE
  4. ESCITALOPRAM [Concomitant]
     Active Substance: ESCITALOPRAM OXALATE
  5. ALDACTONE [Concomitant]
     Active Substance: SPIRONOLACTONE
  6. BEFACT FORTE [Concomitant]
  7. PROPRANOLOL RETARD [Concomitant]

REACTIONS (8)
  - Paranoia [Recovered/Resolved]
  - Disturbance in attention [Recovered/Resolved]
  - Hallucination, auditory [Recovered/Resolved]
  - Confusional state [Recovered/Resolved]
  - Hallucination, visual [Recovered/Resolved]
  - Delirium [Recovered/Resolved]
  - Disorientation [Recovered/Resolved]
  - Depression [Recovered/Resolved]

NARRATIVE: CASE EVENT DATE: 20151019
